FAERS Safety Report 9046917 (Version 1)
Quarter: 2013Q1

REPORT INFORMATION
  Report Type: Report from Study
  Country: CA (occurrence: CA)
  Receive Date: 20130204
  Receipt Date: 20130204
  Transmission Date: 20140127
  Serious: Yes (Other)
  Sender: FDA-Public Use
  Company Number: CA-JNJFOC-20130113118

PATIENT
  Age: 76 None
  Sex: Female
  Weight: 62.2 kg

DRUGS (3)
  1. REMICADE [Suspect]
     Indication: RHEUMATOID ARTHRITIS
     Dosage: THERAPY DURATION FOR 11 YEARS
     Route: 042
  2. FOSAMAX [Concomitant]
     Indication: OSTEOPOROSIS
     Route: 065
  3. VIT D [Concomitant]
     Indication: OSTEOPOROSIS
     Route: 065

REACTIONS (3)
  - Fall [Recovered/Resolved]
  - Hand fracture [Unknown]
  - Laceration [Recovered/Resolved]
